FAERS Safety Report 25332006 (Version 1)
Quarter: 2025Q2

REPORT INFORMATION
  Report Type: Spontaneous
  Country: GB (occurrence: GB)
  Receive Date: 20250519
  Receipt Date: 20250519
  Transmission Date: 20250716
  Serious: Yes (Hospitalization, Other)
  Sender: TAKEDA
  Company Number: GB-TAKEDA-2025TUS045257

PATIENT

DRUGS (4)
  1. COLCHICINE [Suspect]
     Active Substance: COLCHICINE
     Indication: Pericardial effusion
     Dosage: 0.5 MILLIGRAM, QD
  2. COLCHICINE [Suspect]
     Active Substance: COLCHICINE
     Dosage: 1 MILLIGRAM, BID
  3. IBUPROFEN [Concomitant]
     Active Substance: IBUPROFEN
     Indication: Pericardial effusion
  4. PREDNISOLONE [Concomitant]
     Active Substance: PREDNISOLONE
     Indication: Pericardial effusion

REACTIONS (11)
  - Toxicity to various agents [Unknown]
  - Metabolic acidosis [Unknown]
  - Hyperpyrexia [Unknown]
  - Coagulopathy [Unknown]
  - Thrombocytopenia [Unknown]
  - Cardiovascular disorder [Unknown]
  - Hepatic function abnormal [Unknown]
  - Renal impairment [Unknown]
  - Product use in unapproved indication [Unknown]
  - Product use issue [Unknown]
  - Overdose [Unknown]
